FAERS Safety Report 4866500-5 (Version None)
Quarter: 2005Q4

REPORT INFORMATION
  Report Type: 
  Country: None (occurrence: None)
  Receive Date: 20051227
  Receipt Date: 20050926
  Transmission Date: 20060501
  Serious: Yes (Hospitalization, Disabling)
  Sender: FDA-Public Use
  Company Number: US-MERCK-0509USA04153

PATIENT
  Age: 59 Year
  Sex: Female
  Weight: 59 kg

DRUGS (5)
  1. VIOXX [Suspect]
     Indication: OSTEOARTHRITIS
     Route: 048
     Dates: start: 19990101, end: 20040930
  2. VIOXX [Suspect]
     Indication: PAIN
     Route: 048
     Dates: start: 19990101, end: 20040930
  3. ATENOLOL [Concomitant]
     Indication: HYPERTENSION
     Route: 065
     Dates: start: 19970101
  4. PROTONIX [Concomitant]
     Indication: GASTRIC DISORDER
     Route: 065
  5. NIFEDIAC [Concomitant]
     Indication: HYPERTENSION
     Route: 065
     Dates: start: 20030101

REACTIONS (9)
  - ADVERSE EVENT [None]
  - BACK PAIN [None]
  - BLOOD CHOLESTEROL INCREASED [None]
  - CEREBROVASCULAR ACCIDENT [None]
  - DYSPEPSIA [None]
  - FLUID RETENTION [None]
  - GASTRIC DISORDER [None]
  - INTERVERTEBRAL DISC PROTRUSION [None]
  - NEOPLASM [None]
